FAERS Safety Report 23415882 (Version 1)
Quarter: 2024Q1

REPORT INFORMATION
  Report Type: Spontaneous
  Country: US (occurrence: None)
  Receive Date: 20240117
  Receipt Date: 20240117
  Transmission Date: 20240410
  Serious: Yes (Hospitalization)
  Sender: FDA-Public Use
  Company Number: None

PATIENT
  Age: 63 Year
  Sex: Female
  Weight: 48.3 kg

DRUGS (1)
  1. ABECMA [Suspect]
     Active Substance: IDECABTAGENE VICLEUCEL
     Indication: Plasma cell myeloma
     Dosage: 5  TOT - TOTAL ONCE INTRAVENOUS
     Route: 042
     Dates: start: 20231205, end: 20231205

REACTIONS (2)
  - Lymphocyte adoptive therapy [None]
  - Cytokine release syndrome [None]

NARRATIVE: CASE EVENT DATE: 20231205
